FAERS Safety Report 14391937 (Version 1)
Quarter: 2018Q1

REPORT INFORMATION
  Report Type: Spontaneous
  Country: US (occurrence: US)
  Receive Date: 20180115
  Receipt Date: 20180115
  Transmission Date: 20180509
  Serious: Yes (Death)
  Sender: FDA-Public Use
  Company Number: None

PATIENT
  Age: 56 Year
  Sex: Female
  Weight: 60.8 kg

DRUGS (1)
  1. ONDANSETRON [Suspect]
     Active Substance: ONDANSETRON
     Indication: NAUSEA
     Route: 040
     Dates: start: 20171228, end: 20171228

REACTIONS (3)
  - Tachycardia [None]
  - Cardio-respiratory arrest [None]
  - Electrocardiogram QRS complex prolonged [None]

NARRATIVE: CASE EVENT DATE: 20171228
